FAERS Safety Report 8144664-8 (Version None)
Quarter: 2012Q1

REPORT INFORMATION
  Report Type: 
  Country: None (occurrence: None)
  Receive Date: 20120217
  Receipt Date: 20111024
  Transmission Date: 20120608
  Serious: Yes (Death, Hospitalization)
  Sender: FDA-Public Use
  Company Number: ES-ROCHE-1006776

PATIENT
  Sex: Female
  Weight: 65.5 kg

DRUGS (9)
  1. NALOXONE HYDROCHLORIDE/OXYCODONE HYDROCHLORIDE [Concomitant]
     Dosage: DAILY DOSE: 40/20 MG
     Dates: start: 20110228
  2. LEVOLEUCOVORIN CALCIUM [Concomitant]
     Dates: start: 20110228
  3. PREDNISONE [Concomitant]
     Dates: start: 20101215
  4. BLINDED TOCILIZUMAB [Suspect]
     Indication: RHEUMATOID ARTHRITIS
     Dosage: LAST DOSE PRIOR TO SAE: 13 JAN 2011
     Route: 042
     Dates: start: 20101215
  5. ADALIMUMAB [Concomitant]
     Dates: start: 20110228
  6. METHOTREXATE [Concomitant]
     Dates: start: 20101215
  7. ENALAPRIL [Concomitant]
     Dates: start: 20080601
  8. METAMIZOL [Concomitant]
  9. INSULIN [Concomitant]
     Dates: start: 20110101

REACTIONS (2)
  - LIVER INJURY [None]
  - PANCREATIC NEOPLASM [None]
